FAERS Safety Report 4278308-2 (Version None)
Quarter: 2004Q1

REPORT INFORMATION
  Report Type: 
  Country: None (occurrence: None)
  Receive Date: 20040121
  Receipt Date: 20040121
  Transmission Date: 20041129
  Serious: Yes (Hospitalization)
  Sender: FDA-Public Use
  Company Number: None

PATIENT
  Age: 70 Year
  Sex: Female
  Weight: 102 kg

DRUGS (13)
  1. AMIODARONE HCL [Suspect]
     Indication: ATRIAL FIBRILLATION
     Dosage: 100 MG PO QD
     Route: 048
     Dates: start: 20031101
  2. PROBENECID [Concomitant]
  3. SALSALATE [Concomitant]
  4. DOXEPIN [Concomitant]
  5. FLUOXETINE [Concomitant]
  6. LEVOTHYROID [Concomitant]
  7. LASIX [Concomitant]
  8. PREVACID [Concomitant]
  9. COZAAR [Concomitant]
  10. LOPRESSOR [Concomitant]
  11. WARFARIN SODIUM [Concomitant]
  12. KCL TAB [Concomitant]
  13. ESTROGEN [Concomitant]

REACTIONS (5)
  - ASPIRATION [None]
  - COUGH [None]
  - DYSPNOEA [None]
  - OXYGEN SATURATION DECREASED [None]
  - PULMONARY FIBROSIS [None]
